FAERS Safety Report 5849233-8 (Version None)
Quarter: 2008Q3

REPORT INFORMATION
  Report Type: 
  Country: None (occurrence: None)
  Receive Date: 20080815
  Receipt Date: 20080710
  Transmission Date: 20090109
  Serious: Yes (Other)
  Sender: FDA-Public Use
  Company Number: 2008SP016416

PATIENT
  Sex: Female

DRUGS (8)
  1. MIRALAX (POLYETHYENE GLYCOL 3350) (17 GM) [Suspect]
     Indication: DRUG USE FOR UNKNOWN INDICATION
     Dosage: BID;TID
     Dates: start: 20080619, end: 20080620
  2. MIRALAX (POLYETHYENE GLYCOL 3350) (17 GM) [Suspect]
     Indication: DRUG USE FOR UNKNOWN INDICATION
     Dosage: BID;TID
     Dates: start: 20080621, end: 20080621
  3. SERZONE [Concomitant]
  4. EFFEXOR [Concomitant]
  5. ZETIA [Concomitant]
  6. PROTONIX [Concomitant]
  7. PRILOSEC [Concomitant]
  8. CHEMOTHERAPY [Concomitant]

REACTIONS (3)
  - FALL [None]
  - FOOT FRACTURE [None]
  - SYNCOPE [None]
